FAERS Safety Report 16035487 (Version 1)
Quarter: 2019Q1

REPORT INFORMATION
  Report Type: Spontaneous
  Country: US (occurrence: US)
  Receive Date: 20190305
  Receipt Date: 20190305
  Transmission Date: 20190418
  Serious: No
  Sender: FDA-Public Use
  Company Number: US-MYLANLABS-2019M1016147

PATIENT

DRUGS (1)
  1. CYSTAGON [Suspect]
     Active Substance: CYSTEAMINE BITARTRATE
     Indication: CYSTINOSIS
     Dosage: 400 MILLIGRAM, QID
     Route: 048
     Dates: start: 20020116

REACTIONS (1)
  - Blood homocysteine abnormal [Unknown]
